FAERS Safety Report 24798880 (Version 2)
Quarter: 2025Q3

REPORT INFORMATION
  Report Type: Report from Study
  Country: US (occurrence: US)
  Receive Date: 20250102
  Receipt Date: 20250809
  Transmission Date: 20251021
  Serious: Yes (Other)
  Sender: ALEXION PHARMACEUTICALS
  Company Number: US-AstraZeneca-CH-00774982A

PATIENT
  Sex: Female

DRUGS (1)
  1. OLAPARIB [Suspect]
     Active Substance: OLAPARIB
     Dates: start: 202409

REACTIONS (6)
  - Thrombosis [Unknown]
  - Flatulence [Unknown]
  - Arthralgia [Unknown]
  - Joint injury [Unknown]
  - Arthritis [Unknown]
  - Dyspepsia [Unknown]
